FAERS Safety Report 8784801 (Version 1)
Quarter: 2012Q4

REPORT INFORMATION
  Report Type: Spontaneous
  Country: US (occurrence: None)
  Receive Date: 20120907
  Receipt Date: 20120907
  Transmission Date: 20130627
  Serious: Yes (Death)
  Sender: FDA-Public Use
  Company Number: None

PATIENT
  Age: 98 Year
  Sex: Female

DRUGS (2)
  1. FERAHEME [Suspect]
     Indication: IRON DEFICIENCY
     Route: 042
     Dates: start: 20120828, end: 20120905
  2. FERAHEME [Suspect]
     Indication: CHRONIC RENAL FAILURE ANEMIA
     Route: 042
     Dates: start: 20120828, end: 20120905

REACTIONS (3)
  - Sinus bradycardia [None]
  - Pulse absent [None]
  - Unresponsive to stimuli [None]
